FAERS Safety Report 15739881 (Version 4)
Quarter: 2019Q2

REPORT INFORMATION
  Report Type: Spontaneous
  Country: US (occurrence: US)
  Receive Date: 20181219
  Receipt Date: 20190529
  Transmission Date: 20190711
  Serious: No
  Sender: FDA-Public Use
  Company Number: US-SA-2018SA281254

PATIENT
  Age: 64 Year
  Sex: Female

DRUGS (1)
  1. KEVZARA [Suspect]
     Active Substance: SARILUMAB
     Indication: RHEUMATOID ARTHRITIS
     Dosage: 200 MG, QOW
     Route: 058
     Dates: start: 201809

REACTIONS (6)
  - Muscle spasms [Unknown]
  - Vision blurred [Unknown]
  - Feeling cold [Unknown]
  - Headache [Unknown]
  - Skin mass [Unknown]
  - Sinus disorder [Unknown]
